FAERS Safety Report 18188413 (Version 2)
Quarter: 2020Q3

REPORT INFORMATION
  Report Type: Report from Study
  Country: US (occurrence: US)
  Receive Date: 20200824
  Receipt Date: 20200828
  Transmission Date: 20201104
  Serious: Yes (Hospitalization)
  Sender: FDA-Public Use
  Company Number: US-PFIZER INC-2020322977

PATIENT
  Age: 70 Year
  Sex: Male
  Weight: 76.19 kg

DRUGS (16)
  1. ATORVASTATIN [Concomitant]
     Active Substance: ATORVASTATIN
     Indication: HYPERLIPIDAEMIA
     Dosage: 10 MG, EVERY 2 DAYS
     Route: 048
     Dates: start: 201902
  2. LANTUS [Concomitant]
     Active Substance: INSULIN GLARGINE
     Indication: DIABETES MELLITUS
     Dosage: 10 IU, 1X/DAY
     Dates: start: 201905
  3. ZOFRAN [Concomitant]
     Active Substance: ONDANSETRON HYDROCHLORIDE
     Indication: NAUSEA
     Dosage: 4 MG, Q6HRS PRN
     Route: 048
     Dates: start: 20200817
  4. ARANESP [Concomitant]
     Active Substance: DARBEPOETIN ALFA
     Indication: COLONY STIMULATING FACTOR THERAPY
     Dosage: 40 UG, CYCLIC (Q4WEEKS)
     Dates: start: 20200329
  5. ENZALUTAMIDE [Suspect]
     Active Substance: ENZALUTAMIDE
     Indication: PROSTATE CANCER METASTATIC
     Dosage: 160 MG, 1X/DAY
     Route: 048
     Dates: start: 20191217, end: 20200814
  6. CALCIUM [Concomitant]
     Active Substance: CALCIUM
     Indication: SUPPLEMENTATION THERAPY
     Dosage: 5000 MG, 1X/DAY
     Route: 048
     Dates: start: 201802
  7. MIDODRINE [Concomitant]
     Active Substance: MIDODRINE
     Dosage: 5?10MG, 3X/DAY
     Route: 048
     Dates: start: 20200505
  8. JANUVIA [Concomitant]
     Active Substance: SITAGLIPTIN PHOSPHATE
     Indication: DIABETES MELLITUS
     Dosage: 50 MG, 1X/DAY
     Route: 048
     Dates: start: 201907
  9. VITAMIN B12 [Concomitant]
     Active Substance: CYANOCOBALAMIN
     Indication: SUPPLEMENTATION THERAPY
     Dosage: 500 IU, 1X/DAY
     Route: 048
     Dates: start: 20200101, end: 20200227
  10. VITAMIN B12 [Concomitant]
     Active Substance: CYANOCOBALAMIN
     Dosage: 1000 UG, MONTHLY (INJECTION)
     Dates: start: 20200228
  11. TALAZOPARIB. [Suspect]
     Active Substance: TALAZOPARIB
     Indication: PROSTATE CANCER METASTATIC
     Dosage: UNK, 1X/DAY
     Route: 048
     Dates: start: 20191217, end: 20200814
  12. DOXYCYCLINE HYCLATE. [Suspect]
     Active Substance: DOXYCYCLINE HYCLATE
     Indication: URINARY TRACT INFECTION
     Dosage: 100 MG, 2X/DAY
     Route: 048
     Dates: start: 20200812, end: 20200814
  13. MIDODRINE [Concomitant]
     Active Substance: MIDODRINE
     Indication: ORTHOSTATIC HYPOTENSION
     Dosage: 2.5 MG, 2X/DAY
     Route: 048
     Dates: start: 20191218, end: 20200505
  14. FLORINEF ACETATE [Concomitant]
     Active Substance: FLUDROCORTISONE ACETATE
     Indication: HYPOTENSION
     Dosage: 0.1 MG, 1X/DAY
     Route: 048
     Dates: start: 201902
  15. EYLEA [Concomitant]
     Active Substance: AFLIBERCEPT
     Indication: MACULAR DEGENERATION
     Dosage: UNK, CYCLIC (R Q 6 WEEKS/ L Q 12 WEEKS)
     Route: 047
     Dates: start: 201501
  16. LUPRON [Concomitant]
     Active Substance: LEUPROLIDE ACETATE
     Indication: PROSTATE CANCER
     Dosage: UNK, CYCLIC (Q 6 MONTHS)
     Dates: start: 201805

REACTIONS (6)
  - Nausea [Recovered/Resolved]
  - Hypertension [Recovered/Resolved]
  - Cholecystitis [Recovered/Resolved]
  - Vomiting [Recovered/Resolved]
  - Abdominal pain [Recovering/Resolving]
  - Urinary tract infection [Recovering/Resolving]

NARRATIVE: CASE EVENT DATE: 20200812
